FAERS Safety Report 6779851-4 (Version None)
Quarter: 2010Q2

REPORT INFORMATION
  Report Type: 
  Country: None (occurrence: None)
  Receive Date: 20100618
  Receipt Date: 20100611
  Transmission Date: 20101027
  Serious: Yes (Hospitalization, Other)
  Sender: FDA-Public Use
  Company Number: CA-PFIZER INC-2010073526

PATIENT
  Age: 59 Year
  Sex: Female

DRUGS (1)
  1. CELEBREX [Suspect]
     Dosage: UNK
     Dates: end: 20100101

REACTIONS (4)
  - ARTHRITIS [None]
  - HYPERTENSION [None]
  - MULTIPLE SCLEROSIS [None]
  - RENAL DISORDER [None]
